FAERS Safety Report 7277756-6 (Version None)
Quarter: 2011Q1

REPORT INFORMATION
  Report Type: 
  Country: None (occurrence: None)
  Receive Date: 20110204
  Receipt Date: 20110201
  Transmission Date: 20110831
  Serious: Yes (Hospitalization)
  Sender: FDA-Public Use
  Company Number: DL2011-0081

PATIENT
  Age: 21 Year
  Sex: Female

DRUGS (3)
  1. MISOPROSTOL [Suspect]
     Dosage: 800 MCG, BUCCAL
     Route: 002
     Dates: start: 20101106
  2. MIFEPRISTONE (MIFEPREX) [Suspect]
     Indication: ABORTION INDUCED
     Dosage: 200 MG,ORAL
     Route: 048
     Dates: start: 20101105
  3. DOXYCYCLINE [Concomitant]

REACTIONS (5)
  - PAIN [None]
  - ENDOMETRIOSIS [None]
  - POST PROCEDURAL SEPSIS [None]
  - HAEMORRHAGE [None]
  - STREPTOCOCCAL SEPSIS [None]
